FAERS Safety Report 5635232-8 (Version None)
Quarter: 2008Q1

REPORT INFORMATION
  Report Type: 
  Country: None (occurrence: None)
  Receive Date: 20080222
  Receipt Date: 20080125
  Transmission Date: 20080703
  Serious: No
  Sender: FDA-Public Use
  Company Number: US-BOEHRINGER INGELHEIM GMBH, GERMANY-2008-BP-01256BP

PATIENT
  Sex: Male

DRUGS (1)
  1. CLONIDINE HCL [Suspect]
     Indication: HYPERTENSION
     Route: 048

REACTIONS (3)
  - BLOOD PRESSURE INADEQUATELY CONTROLLED [None]
  - CONSTIPATION [None]
  - FEELING ABNORMAL [None]
